FAERS Safety Report 23082467 (Version 3)
Quarter: 2023Q4

REPORT INFORMATION
  Report Type: Spontaneous
  Country: US (occurrence: US)
  Receive Date: 20231019
  Receipt Date: 20231116
  Transmission Date: 20240110
  Serious: No
  Sender: FDA-Public Use
  Company Number: US-UNITED THERAPEUTICS-UNT-2023-029434

PATIENT
  Sex: Female

DRUGS (6)
  1. REMODULIN [Suspect]
     Active Substance: TREPROSTINIL
     Indication: Pulmonary arterial hypertension
     Dosage: 0.026 ?G/KG, CONTINUING
     Route: 058
     Dates: start: 202310
  2. REMODULIN [Suspect]
     Active Substance: TREPROSTINIL
     Dosage: 0.02827 ?G/KG, CONTINUING
     Route: 058
     Dates: start: 202310
  3. REMODULIN [Suspect]
     Active Substance: TREPROSTINIL
     Dosage: 0.03125 ?G/KG, CONTINUING (AT PUMP RATE OF  21 ML/HR)
     Route: 058
     Dates: start: 20231017
  4. REMODULIN [Suspect]
     Active Substance: TREPROSTINIL
     Dosage: 0.03225 ?G/KG, CONTINUING
     Route: 058
     Dates: start: 202310
  5. REMODULIN [Suspect]
     Active Substance: TREPROSTINIL
     Dosage: 0.03720 ?G/KG, CONTINUING
     Route: 058
     Dates: start: 2023
  6. REMODULIN [Suspect]
     Active Substance: TREPROSTINIL
     Dosage: UNK, CONTINUING
     Route: 058
     Dates: start: 202310

REACTIONS (15)
  - Nausea [Unknown]
  - Headache [Unknown]
  - Chest pain [Unknown]
  - Device malfunction [Unknown]
  - Device alarm issue [Unknown]
  - Infusion site discomfort [Unknown]
  - Anxiety [Unknown]
  - Vomiting [Unknown]
  - Dyspnoea [Unknown]
  - Chest discomfort [Unknown]
  - Oxygen saturation decreased [Unknown]
  - Dyspepsia [Unknown]
  - Device dislocation [Unknown]
  - Nocturnal dyspnoea [Unknown]
  - Diarrhoea [Unknown]

NARRATIVE: CASE EVENT DATE: 20230101
